FAERS Safety Report 16179522 (Version 1)
Quarter: 2019Q2

REPORT INFORMATION
  Report Type: Spontaneous
  Country: FR (occurrence: FR)
  Receive Date: 20190410
  Receipt Date: 20190410
  Transmission Date: 20190711
  Serious: Yes (Life-Threatening, Hospitalization)
  Sender: FDA-Public Use
  Company Number: FR-PFIZER INC-HQWYE530013AUG07

PATIENT
  Age: 83 Year
  Sex: Female
  Weight: 60 kg

DRUGS (12)
  1. ZECLAR [Concomitant]
     Active Substance: CLARITHROMYCIN
     Indication: GASTROINTESTINAL ULCER
     Dosage: 1 G, 1X/DAY
     Route: 065
     Dates: start: 20070604, end: 20070610
  2. DALACINE [CLINDAMYCIN HYDROCHLORIDE] [Concomitant]
     Active Substance: CLINDAMYCIN HYDROCHLORIDE
     Indication: RHEUMATOID ARTHRITIS
     Dosage: 600 MILLIGRAM, QD
     Route: 042
     Dates: start: 20070531, end: 20070610
  3. INIPOMP [Suspect]
     Active Substance: PANTOPRAZOLE SODIUM
     Dosage: ^DF^
     Route: 048
     Dates: start: 20070522, end: 20070604
  4. CLINDAMYCIN HYDROCHLORIDE. [Concomitant]
     Active Substance: CLINDAMYCIN HYDROCHLORIDE
     Dosage: UNK
     Route: 042
     Dates: start: 20070531, end: 20070610
  5. LASILIX [FUROSEMIDE] [Concomitant]
     Active Substance: FUROSEMIDE
     Dosage: UNK
     Route: 048
     Dates: start: 20070604
  6. DAFALGAN [Concomitant]
     Active Substance: ACETAMINOPHEN
     Dosage: 1 GRAM, QD
     Route: 048
  7. CELEBREX [Concomitant]
     Active Substance: CELECOXIB
     Indication: RHEUMATOID ARTHRITIS
     Dosage: UNK
     Route: 048
     Dates: start: 1995
  8. FLAGYL [METRONIDAZOLE BENZOATE] [Concomitant]
     Active Substance: METRONIDAZOLE BENZOATE
     Indication: GASTROINTESTINAL ULCER
     Dosage: 1 GRAM, QD
     Route: 065
     Dates: start: 20070604, end: 20070610
  9. DAFALGAN [Concomitant]
     Active Substance: ACETAMINOPHEN
     Indication: RHEUMATOID ARTHRITIS
     Dosage: 1 GRAM, TID
     Route: 048
  10. PYOSTACINE [Suspect]
     Active Substance: PRISTINAMYCIN
     Indication: ERYSIPELAS
     Dosage: 1 GRAM, TID
     Route: 048
     Dates: start: 20070522, end: 20070531
  11. LANZOR [Concomitant]
     Active Substance: LANSOPRAZOLE
     Dosage: UNK
     Route: 048
     Dates: start: 20070611
  12. INIPOMP [Suspect]
     Active Substance: PANTOPRAZOLE SODIUM
     Indication: DUODENAL ULCER
     Dosage: ^DF^
     Route: 042
     Dates: start: 20070604, end: 20070611

REACTIONS (3)
  - Erythema multiforme [Not Recovered/Not Resolved]
  - Dermatitis bullous [Not Recovered/Not Resolved]
  - Rash maculo-papular [Not Recovered/Not Resolved]

NARRATIVE: CASE EVENT DATE: 20070531
